FAERS Safety Report 18762530 (Version 1)
Quarter: 2021Q1

REPORT INFORMATION
  Report Type: Spontaneous
  Country: LT (occurrence: LT)
  Receive Date: 20210120
  Receipt Date: 20210120
  Transmission Date: 20210419
  Serious: Yes (Hospitalization)
  Sender: FDA-Public Use
  Company Number: LT-FRESENIUS KABI-FK202100636

PATIENT
  Age: 67 Year
  Sex: Male

DRUGS (11)
  1. OXALIPLATIN (MANUFACTURER UNKNOWN) [Suspect]
     Active Substance: OXALIPLATIN
     Indication: ADENOCARCINOMA
     Dosage: AS PER FOLFOX4 REGIMEN
     Route: 065
     Dates: start: 201610, end: 201704
  2. AFLIBERCEPT [Concomitant]
     Active Substance: AFLIBERCEPT
     Indication: ADENOCARCINOMA
     Route: 065
     Dates: start: 201803
  3. FLUOROURACIL. [Suspect]
     Active Substance: FLUOROURACIL
     Indication: CHEMOTHERAPY
     Dosage: AS PER FOLFOX4 REGIMEN
     Route: 065
     Dates: start: 201907
  4. FLUOROURACIL. [Suspect]
     Active Substance: FLUOROURACIL
     Indication: ADENOCARCINOMA
     Dosage: AS PER FOLFOX4 REGIMEN
     Route: 065
     Dates: start: 201610, end: 201704
  5. FOLINIC ACID [Suspect]
     Active Substance: LEUCOVORIN
     Indication: CHEMOTHERAPY
     Dosage: AS PER FOLFOX4 REGIMEN
     Route: 065
     Dates: start: 201907
  6. FLUOROURACIL/FOLINIC ACID [Concomitant]
     Indication: ADENOCARCINOMA
     Route: 065
  7. CETUXIMAB. [Concomitant]
     Active Substance: CETUXIMAB
     Indication: ADENOCARCINOMA
     Route: 065
     Dates: start: 201610, end: 201704
  8. FLUOROURACIL/CALCIUM FOLINATE/IRINOTECAN HYDROCHLORIDE [Concomitant]
     Active Substance: FLUOROURACIL\IRINOTECAN\LEUCOVORIN
     Indication: ADENOCARCINOMA
     Route: 065
     Dates: start: 201803
  9. FOLINIC ACID [Suspect]
     Active Substance: LEUCOVORIN
     Indication: ADENOCARCINOMA
     Dosage: AS PER FOLFOX4 REGIMEN
     Route: 065
     Dates: start: 201610, end: 201704
  10. OXALIPLATIN (MANUFACTURER UNKNOWN) [Suspect]
     Active Substance: OXALIPLATIN
     Indication: CHEMOTHERAPY
     Dosage: AS PER FOLFOX4 REGIMEN
     Route: 065
     Dates: start: 201907
  11. TRIFLURIDINE/TIPIRACIL HYDROCHLORIDE [Concomitant]
     Active Substance: TIPIRACIL HYDROCHLORIDE\TRIFLURIDINE
     Indication: ADENOCARCINOMA
     Route: 065
     Dates: start: 201902

REACTIONS (4)
  - Sensory disturbance [Not Recovered/Not Resolved]
  - Restless legs syndrome [Not Recovered/Not Resolved]
  - Neuropathy peripheral [Not Recovered/Not Resolved]
  - Pruritus [Not Recovered/Not Resolved]
